FAERS Safety Report 9467621 (Version 1)
Quarter: 2013Q3

REPORT INFORMATION
  Report Type: Spontaneous
  Country: US (occurrence: None)
  Receive Date: 20130819
  Receipt Date: 20130819
  Transmission Date: 20140515
  Serious: Yes (Disabling)
  Sender: FDA-Public Use
  Company Number: None

PATIENT
  Age: 32 Year
  Sex: Female
  Weight: 60.78 kg

DRUGS (2)
  1. CYMBALTA [Suspect]
     Indication: MIGRAINE
     Dosage: 1 CAPSULE  AT BEDTIME  TAKEN BY MOUTH
     Route: 048
  2. CYMBALTA [Suspect]
     Indication: NECK PAIN
     Dosage: 1 CAPSULE  AT BEDTIME  TAKEN BY MOUTH
     Route: 048

REACTIONS (4)
  - Fatigue [None]
  - Dizziness [None]
  - Electric shock [None]
  - Diarrhoea [None]
